FAERS Safety Report 6730839-9 (Version None)
Quarter: 2010Q2

REPORT INFORMATION
  Report Type: 
  Country: None (occurrence: None)
  Receive Date: 20100514
  Receipt Date: 20100505
  Transmission Date: 20101027
  Serious: Yes (Hospitalization)
  Sender: FDA-Public Use
  Company Number: LEO-2010-00370

PATIENT
  Age: 36 Year
  Sex: Female
  Weight: 73 kg

DRUGS (8)
  1. INNOHEP [Suspect]
     Indication: ABORTION SPONTANEOUS
     Dosage: 4500 IU (4500 IU, 1 IN 1 D)
     Dates: start: 20050402, end: 20051113
  2. INNOHEP [Suspect]
     Indication: CARDIOLIPIN ANTIBODY POSITIVE
     Dosage: 4500 IU (4500 IU, 1 IN 1 D)
     Dates: start: 20050402, end: 20051113
  3. INNOHEP [Suspect]
     Indication: PROPHYLAXIS
     Dosage: 4500 IU (4500 IU, 1 IN 1 D)
     Dates: start: 20050402, end: 20051113
  4. INNOHEP [Suspect]
     Indication: ABORTION SPONTANEOUS
     Dosage: 4500 IU (4500 IU, 1 IN 1 D)
     Dates: end: 20051118
  5. INNOHEP [Suspect]
     Indication: CARDIOLIPIN ANTIBODY POSITIVE
     Dosage: 4500 IU (4500 IU, 1 IN 1 D)
     Dates: end: 20051118
  6. INNOHEP [Suspect]
     Indication: PROPHYLAXIS
     Dosage: 4500 IU (4500 IU, 1 IN 1 D)
     Dates: end: 20051118
  7. ERCOQUIN (HYDROXYCHLOROQUINE SULFATE) [Concomitant]
  8. VITAMIN SUPPLEMENT (ERGOCALCIFEROL, ASCORBIC ACID, THIAMINE HYDROCHLOR [Concomitant]

REACTIONS (4)
  - CAESAREAN SECTION [None]
  - DRUG EXPOSURE DURING PREGNANCY [None]
  - PLACENTA PRAEVIA HAEMORRHAGE [None]
  - RUBIVIRUS TEST POSITIVE [None]
